FAERS Safety Report 11889885 (Version 2)
Quarter: 2016Q4

REPORT INFORMATION
  Report Type: Spontaneous
  Country: US (occurrence: US)
  Receive Date: 20160105
  Receipt Date: 20161021
  Transmission Date: 20170206
  Serious: No
  Sender: FDA-Public Use
  Company Number: US-BAYER-2016-001607

PATIENT
  Age: 77 Year
  Sex: Male
  Weight: 115.65 kg

DRUGS (2)
  1. ALEVE [Suspect]
     Active Substance: NAPROXEN SODIUM
     Indication: ARTHRALGIA
  2. ALEVE [Suspect]
     Active Substance: NAPROXEN SODIUM
     Indication: ARTHRITIS
     Dosage: 2 DF, BID
     Route: 048
     Dates: start: 2014

REACTIONS (2)
  - Blood iron decreased [Recovered/Resolved]
  - Product use issue [None]

NARRATIVE: CASE EVENT DATE: 2014
